FAERS Safety Report 4540013-2 (Version None)
Quarter: 2004Q4

REPORT INFORMATION
  Report Type: 
  Country: None (occurrence: None)
  Receive Date: 20041223
  Receipt Date: 20041220
  Transmission Date: 20050328
  Serious: Yes (Hospitalization)
  Sender: FDA-Public Use
  Company Number: J081-002-001830

PATIENT
  Age: 75 Year
  Sex: Female

DRUGS (7)
  1. ARICEPT [Suspect]
     Indication: DEMENTIA ALZHEIMER'S TYPE
     Dosage: 5 MG, 1 IN 1 D, ORAL
     Route: 048
     Dates: start: 20040401
  2. OMEPRAZOLE [Concomitant]
  3. ALYSE S (BIODIASTASE 1000 COMBINATION DRUG) [Concomitant]
  4. ASPIRIN [Concomitant]
  5. SM (TADA-DIASTASE/NATURAL AGENTS COMBINATION DRUG) [Concomitant]
  6. BLOPRESS (CANDESARTAN CILEXETIL) [Concomitant]
  7. BEHYD (BENZYLHYDROCHLOROTHIAZIDE) [Concomitant]

REACTIONS (5)
  - CONTUSION [None]
  - FALL [None]
  - HEAD INJURY [None]
  - PARKINSONISM [None]
  - RADIUS FRACTURE [None]
